FAERS Safety Report 6996340-2 (Version None)
Quarter: 2010Q3

REPORT INFORMATION
  Report Type: 
  Country: None (occurrence: None)
  Receive Date: 20100918
  Receipt Date: 20090218
  Transmission Date: 20110219
  Serious: No
  Sender: FDA-Public Use
  Company Number: US-WYE-H08262909

PATIENT
  Sex: Female
  Weight: 136.2 kg

DRUGS (4)
  1. EFFEXOR XR [Suspect]
     Indication: BIPOLAR I DISORDER
     Route: 048
     Dates: start: 20010101
  2. EFFEXOR XR [Suspect]
     Dosage: DECREASED TO HALF OF A 37.5 MG EVERY THIRD DAY
     Route: 048
  3. EFFEXOR XR [Suspect]
     Route: 048
  4. ALLEGRA [Concomitant]

REACTIONS (4)
  - DENTAL CARIES [None]
  - DIZZINESS [None]
  - DRUG WITHDRAWAL SYNDROME [None]
  - TOOTH INFECTION [None]
